FAERS Safety Report 4854554-1 (Version None)
Quarter: 2005Q4

REPORT INFORMATION
  Report Type: 
  Country: None (occurrence: None)
  Receive Date: 20051215
  Receipt Date: 20051207
  Transmission Date: 20060501
  Serious: Yes (Other)
  Sender: FDA-Public Use
  Company Number: 2005PK02378

PATIENT
  Age: 68 Year
  Sex: Female

DRUGS (1)
  1. NOLVADEX [Suspect]
     Indication: BREAST CANCER
     Route: 048
     Dates: start: 20000529

REACTIONS (2)
  - ENDOMETRIAL ABLATION [None]
  - UTERINE DILATION AND CURETTAGE [None]
